FAERS Safety Report 9289191 (Version 2)
Quarter: 2014Q1

REPORT INFORMATION
  Report Type: Spontaneous
  Country: US (occurrence: US)
  Receive Date: 20130514
  Receipt Date: 20140318
  Transmission Date: 20141002
  Serious: Yes (Other)
  Sender: FDA-Public Use
  Company Number: CHPA2013US008011

PATIENT
  Age: 68 Year
  Sex: Female

DRUGS (4)
  1. EX-LAX UNKNOWN [Suspect]
     Indication: CONSTIPATION
     Dosage: UNK, UNK
     Route: 048
  2. PERDIEM FIBER [Suspect]
     Indication: IRRITABLE BOWEL SYNDROME
     Dosage: 1 TSP, BID
     Route: 048
  3. PERDIEM FIBER [Suspect]
     Indication: DIARRHOEA
     Dosage: UNK, OR 3 TIMES PER DAY
     Route: 048
  4. PERDIEM FIBER [Suspect]
     Indication: VOMITING

REACTIONS (17)
  - Gastric cyst [Recovered/Resolved]
  - Gastrointestinal tract irritation [Recovered/Resolved]
  - Ovarian cyst [Recovered/Resolved]
  - Loss of consciousness [Recovered/Resolved]
  - Irritable bowel syndrome [Recovered/Resolved]
  - Dysuria [Recovered/Resolved]
  - Dyspnoea [Recovered/Resolved]
  - Viral infection [Recovered/Resolved]
  - Nausea [Recovered/Resolved]
  - Sensation of pressure [Recovered/Resolved]
  - Retching [Recovered/Resolved]
  - Diarrhoea [Unknown]
  - Weight increased [Not Recovered/Not Resolved]
  - Abdominal distension [Recovered/Resolved]
  - Abdominal pain upper [Recovered/Resolved]
  - Sinusitis [Unknown]
  - Constipation [Not Recovered/Not Resolved]
